FAERS Safety Report 5882030-6 (Version None)
Quarter: 2008Q3

REPORT INFORMATION
  Report Type: 
  Country: None (occurrence: None)
  Receive Date: 20080912
  Receipt Date: 20080721
  Transmission Date: 20090109
  Serious: No
  Sender: FDA-Public Use
  Company Number: US-ABBOTT-08P-163-0465070-00

PATIENT
  Sex: Female
  Weight: 61.29 kg

DRUGS (6)
  1. HUMIRA [Suspect]
     Indication: CROHN'S DISEASE
     Route: 058
     Dates: start: 20080201
  2. TILIA [Concomitant]
     Indication: CONTRACEPTION
     Route: 048
     Dates: start: 20040101
  3. PRISTIQ [Concomitant]
     Indication: FATIGUE
     Route: 048
     Dates: start: 20080714
  4. PRISTIQ [Concomitant]
     Indication: DEPRESSION
  5. VITA RESPA [Concomitant]
     Indication: FATIGUE
     Route: 048
     Dates: start: 20080714
  6. CYANOCOBALAMIN-TANNIN COMPLEX [Concomitant]
     Indication: VITAMIN SUPPLEMENTATION
     Route: 050
     Dates: start: 20080101

REACTIONS (7)
  - ACCIDENTAL EXPOSURE [None]
  - INJECTION SITE ERYTHEMA [None]
  - INJECTION SITE IRRITATION [None]
  - INJECTION SITE PRURITUS [None]
  - INJECTION SITE REACTION [None]
  - INJECTION SITE WARMTH [None]
  - SKIN REACTION [None]
